FAERS Safety Report 8795985 (Version 6)
Quarter: 2013Q1

REPORT INFORMATION
  Report Type: Report from Study
  Country: US (occurrence: US)
  Receive Date: 20120920
  Receipt Date: 20130118
  Transmission Date: 20140127
  Serious: Yes (Hospitalization, Other)
  Sender: FDA-Public Use
  Company Number: US-TEVA-359481USA

PATIENT
  Age: 10 Year
  Sex: Male

DRUGS (26)
  1. VINCRISTINE [Suspect]
     Indication: ACUTE LYMPHOCYTIC LEUKAEMIA
     Dates: start: 20120801, end: 20120805
  2. DASATINIB [Suspect]
     Indication: ACUTE LYMPHOCYTIC LEUKAEMIA
     Dosage: 80 MILLIGRAM DAILY;
     Route: 048
     Dates: start: 20120604
  3. ETOPOSIDE [Suspect]
     Indication: ACUTE LYMPHOCYTIC LEUKAEMIA
     Dates: start: 20120823, end: 20120825
  4. METHOTREXATE [Suspect]
     Indication: ACUTE LYMPHOCYTIC LEUKAEMIA
     Dosage: 6.5 GRAM DAILY; 1 DAY
     Route: 042
     Dates: start: 20120731
  5. CYTARABINE [Suspect]
     Indication: ACUTE LYMPHOCYTIC LEUKAEMIA
     Route: 042
     Dates: start: 20120731, end: 20120824
  6. DEXAMETHASONE [Suspect]
     Indication: ACUTE LYMPHOCYTIC LEUKAEMIA
     Dates: start: 20120731, end: 20120804
  7. DAUNORUBICIN [Suspect]
     Indication: ACUTE LYMPHOCYTIC LEUKAEMIA
     Dates: start: 20120804, end: 20120804
  8. PEGASPARGASE [Suspect]
     Indication: ACUTE LYMPHOCYTIC LEUKAEMIA
     Dates: start: 20120808, end: 20120826
  9. HYDROCORTISONE [Suspect]
     Dosage: INTH
     Route: 037
     Dates: start: 20120731, end: 20120731
  10. MORPHINE SULFATE [Suspect]
  11. CYCLOPHOSPHAMIDE [Suspect]
     Dates: start: 20121030, end: 20121030
  12. KEPPRA [Suspect]
  13. LORAZEPAM [Concomitant]
     Dates: start: 20120413
  14. ONDANSETRON [Concomitant]
     Dates: start: 20120413
  15. OSCAL [Concomitant]
     Dates: start: 20120417
  16. VITAMIN D [Concomitant]
     Dates: start: 20120417
  17. POLYETHYLENE GLYCOL [Concomitant]
     Dates: start: 20120413
  18. DRONABINOL [Concomitant]
     Dates: start: 20120417
  19. METOCLOPRAMIDE [Concomitant]
     Dates: start: 20120421
  20. SCOPOLAMINE [Concomitant]
     Dates: start: 20120421
  21. PERIACTIN [Concomitant]
     Dates: start: 20120827
  22. BACTRIM [Concomitant]
     Dates: start: 20120413
  23. CHLORHEXIDINE [Concomitant]
     Dates: start: 20120413
  24. NEUTRA-PHOS [Concomitant]
     Dates: start: 20120417
  25. FLUCONAZOLE [Concomitant]
     Dates: start: 20120413
  26. TIOGUANINE [Concomitant]
     Dates: start: 20121030, end: 20121112

REACTIONS (4)
  - Stomatitis [Recovered/Resolved]
  - Febrile neutropenia [Recovered/Resolved]
  - Bacteraemia [Recovered/Resolved]
  - Mucosal infection [Recovered/Resolved]
